FAERS Safety Report 22276756 (Version 2)
Quarter: 2023Q2

REPORT INFORMATION
  Report Type: Spontaneous
  Country: US (occurrence: US)
  Receive Date: 20230503
  Receipt Date: 20230524
  Transmission Date: 20230722
  Serious: Yes (Hospitalization, Other)
  Sender: FDA-Public Use
  Company Number: US-SANOFI-01597264

PATIENT
  Age: 50 Year
  Sex: Female

DRUGS (2)
  1. LANTUS SOLOSTAR [Suspect]
     Active Substance: INSULIN GLARGINE
     Indication: Diabetes mellitus
     Dosage: 20 UNITS QAM AND 45 UNITS QHS
     Route: 058
     Dates: start: 202209
  2. OZEMPIC [Concomitant]
     Active Substance: SEMAGLUTIDE
     Indication: Blood glucose increased
     Dosage: STARTING DOSE WAS 0.25 AND NOW IT IS 0.5

REACTIONS (8)
  - Systemic inflammatory response syndrome [Unknown]
  - Eosinophilic granulomatosis with polyangiitis [Unknown]
  - White blood cell count abnormal [Unknown]
  - Rhinorrhoea [Unknown]
  - Oxygen saturation abnormal [Unknown]
  - Pyrexia [Unknown]
  - Blood glucose increased [Unknown]
  - Inappropriate schedule of product administration [Unknown]

NARRATIVE: CASE EVENT DATE: 20220901
